FAERS Safety Report 9476600 (Version 1)
Quarter: 2013Q3

REPORT INFORMATION
  Report Type: Spontaneous
  Country: FR (occurrence: GB)
  Receive Date: 20130826
  Receipt Date: 20130826
  Transmission Date: 20140515
  Serious: Yes (Hospitalization)
  Sender: FDA-Public Use
  Company Number: GB-FRI-1000047878

PATIENT
  Age: 49 Year
  Sex: Male

DRUGS (16)
  1. ACAMPROSATE [Suspect]
     Dosage: 1980 MG
  2. ACAMPROSATE [Suspect]
     Dosage: OVERDOSE: 13860 MG
     Dates: start: 20130707, end: 20130707
  3. CITALOPRAM [Suspect]
     Dosage: 40MG
  4. CITALOPRAM [Suspect]
     Dosage: OVERDOSE: 280 MG
     Dates: start: 20130707, end: 20130707
  5. METFORMIN [Suspect]
     Dosage: 1500 MG
  6. METFORMIN [Suspect]
     Dosage: OVERDOSE: 10500 MG
     Dates: start: 20130707, end: 20130707
  7. ATORVASTATIN [Suspect]
     Dosage: 30 MG
  8. ATORVASTATIN [Suspect]
     Dosage: OVERDOSE: 210 MG
     Dates: start: 20130707, end: 20130707
  9. OMEPRAZOLE [Suspect]
     Dosage: 20 MG
  10. OMEPRAZOLE [Suspect]
     Dosage: OVERDOSE: 140 MG
     Dates: start: 20130707, end: 20130707
  11. AMISULPRIDE [Suspect]
     Dosage: 450 MG
  12. AMISULPRIDE [Suspect]
     Dosage: OVERDOSE: 3150 MG
     Dates: start: 20130707, end: 20130707
  13. ASPIRIN [Suspect]
     Dosage: 75 MG
  14. ASPIRIN [Suspect]
     Dosage: OVERDOSE: 525 MG
     Dates: start: 20130707, end: 20130707
  15. ZAPONEX [Suspect]
     Route: 048
     Dates: start: 20110802, end: 201307
  16. ZAPONEX [Suspect]
     Dosage: OVERDOSE: 4.9 G
     Dates: start: 20130707, end: 20130707

REACTIONS (3)
  - Cardiovascular disorder [Unknown]
  - Hypoventilation [Recovering/Resolving]
  - Overdose [Recovered/Resolved with Sequelae]
